FAERS Safety Report 23411985 (Version 1)
Quarter: 2024Q1

REPORT INFORMATION
  Report Type: Spontaneous
  Country: DE (occurrence: DE)
  Receive Date: 20240117
  Receipt Date: 20240117
  Transmission Date: 20240410
  Serious: Yes (Other)
  Sender: FDA-Public Use
  Company Number: DE-BoehringerIngelheim-2024-BI-002816

PATIENT
  Age: 82 Year
  Sex: Male

DRUGS (9)
  1. JARDIANCE [Suspect]
     Active Substance: EMPAGLIFLOZIN
     Indication: Type 2 diabetes mellitus
     Dosage: 1-0-0
     Dates: start: 202311
  2. TAMSULOSIN [Concomitant]
     Active Substance: TAMSULOSIN
     Indication: Product used for unknown indication
     Dosage: 1-0-0
  3. AMLODIPINE BESYLATE [Concomitant]
     Active Substance: AMLODIPINE BESYLATE
     Indication: Product used for unknown indication
     Dosage: 1-0-0
  4. PENTAERYTHRITOL TETRANITRATE [Concomitant]
     Active Substance: PENTAERYTHRITOL TETRANITRATE
     Indication: Product used for unknown indication
     Dosage: 1-0-1
  5. BISOPROLOL [Concomitant]
     Active Substance: BISOPROLOL\BISOPROLOL FUMARATE
     Indication: Product used for unknown indication
     Dosage: 1-0-1
  6. Olmesartan/Amlodipin 20/5 [Concomitant]
     Indication: Product used for unknown indication
     Dosage: 1-0-0
  7. Arlevert 20/40 [Concomitant]
     Indication: Product used for unknown indication
     Dosage: 1-0-1
  8. RANEXA [Concomitant]
     Active Substance: RANOLAZINE
     Indication: Product used for unknown indication
     Dosage: 1-0-0
  9. Sitagliptin/Metformin 50/850 [Concomitant]
     Indication: Product used for unknown indication
     Dosage: 0-0-1

REACTIONS (1)
  - Confusional state [Unknown]
